FAERS Safety Report 25651099 (Version 2)
Quarter: 2025Q3

REPORT INFORMATION
  Report Type: Spontaneous
  Country: EU (occurrence: EU)
  Receive Date: 20250806
  Receipt Date: 20250901
  Transmission Date: 20251021
  Serious: Yes (Other)
  Sender: JOHNSON AND JOHNSON
  Company Number: None

PATIENT
  Age: 22 Year
  Sex: Female
  Weight: 92 kg

DRUGS (13)
  1. CONCERTA [Suspect]
     Active Substance: METHYLPHENIDATE HYDROCHLORIDE
     Indication: Product used for unknown indication
     Route: 048
     Dates: start: 20250619, end: 20250623
  2. CONCERTA [Suspect]
     Active Substance: METHYLPHENIDATE HYDROCHLORIDE
     Route: 048
     Dates: start: 20250624, end: 20250701
  3. CONCERTA [Suspect]
     Active Substance: METHYLPHENIDATE HYDROCHLORIDE
     Route: 048
     Dates: start: 20250701, end: 20250715
  4. SPRAVATO [Suspect]
     Active Substance: ESKETAMINE
     Indication: Product used for unknown indication
     Dates: start: 20250606
  5. SPRAVATO [Suspect]
     Active Substance: ESKETAMINE
     Dates: start: 20250619
  6. SPRAVATO [Suspect]
     Active Substance: ESKETAMINE
     Dates: start: 20250626
  7. SPRAVATO [Suspect]
     Active Substance: ESKETAMINE
     Dates: start: 20250703
  8. TERALITHE [Suspect]
     Active Substance: LITHIUM CARBONATE
     Indication: Major depression
     Dates: start: 20250504, end: 20250509
  9. TERALITHE [Suspect]
     Active Substance: LITHIUM CARBONATE
     Dates: start: 20250702, end: 20250709
  10. ARIPIPRAZOLE [Concomitant]
     Active Substance: ARIPIPRAZOLE
     Indication: Product used for unknown indication
  11. LORAZEPAM [Concomitant]
     Active Substance: LORAZEPAM
     Indication: Product used for unknown indication
  12. PREGABALIN [Concomitant]
     Active Substance: PREGABALIN
     Indication: Product used for unknown indication
  13. ETHINYL ESTRADIOL\LEVONORGESTREL [Concomitant]
     Active Substance: ETHINYL ESTRADIOL\LEVONORGESTREL
     Indication: Product used for unknown indication

REACTIONS (1)
  - Gastrointestinal disorder [Recovered/Resolved]

NARRATIVE: CASE EVENT DATE: 20250704
